FAERS Safety Report 6211344-5 (Version None)
Quarter: 2009Q2

REPORT INFORMATION
  Report Type: 
  Country: None (occurrence: None)
  Receive Date: 20090528
  Receipt Date: 20090513
  Transmission Date: 20091009
  Serious: Yes (Other)
  Sender: FDA-Public Use
  Company Number: 2009AL003420

PATIENT
  Age: 78 Year
  Sex: Male

DRUGS (5)
  1. CITALOPRAM HYDROBROMIDE [Suspect]
     Indication: DRUG WITHDRAWAL CONVULSIONS
     Dosage: 10 MG; QID; PO
     Route: 048
     Dates: start: 20080422, end: 20081006
  2. CITALOPRAM HYDROBROMIDE [Suspect]
     Indication: EPILEPSY
     Dosage: 10 MG; QID; PO
     Route: 048
     Dates: start: 20080422, end: 20081006
  3. TEGRETOL [Concomitant]
  4. FELODIPINE [Concomitant]
  5. DIAZEPAM [Concomitant]

REACTIONS (8)
  - COMPLEX PARTIAL SEIZURES [None]
  - DEPERSONALISATION [None]
  - DEREALISATION [None]
  - GLOBAL AMNESIA [None]
  - HAEMORRHAGE [None]
  - PANCYTOPENIA [None]
  - RESTLESSNESS [None]
  - TREMOR [None]
